FAERS Safety Report 14481770 (Version 2)
Quarter: 2018Q1

REPORT INFORMATION
  Report Type: Spontaneous
  Country: JP (occurrence: JP)
  Receive Date: 20180202
  Receipt Date: 20180316
  Transmission Date: 20180509
  Serious: Yes (Other)
  Sender: FDA-Public Use
  Company Number: JP-009507513-1802JPN000336

PATIENT
  Age: 70 Year
  Sex: Male

DRUGS (3)
  1. ZOLINZA [Suspect]
     Active Substance: VORINOSTAT
     Dosage: 300 MG DAILY FOR 5?6 CONSECUTIVE DAYS DURING A 7-DAY PERIOD
     Route: 048
  2. ZOLINZA [Suspect]
     Active Substance: VORINOSTAT
     Dosage: 300 MG, DAILY
     Route: 048
  3. ZOLINZA [Suspect]
     Active Substance: VORINOSTAT
     Indication: MYCOSIS FUNGOIDES STAGE I
     Dosage: 400 MG DAILY
     Route: 048

REACTIONS (2)
  - Drug effect incomplete [Unknown]
  - Thrombocytopenia [Unknown]
